FAERS Safety Report 6634518-8 (Version None)
Quarter: 2010Q1

REPORT INFORMATION
  Report Type: 
  Country: None (occurrence: None)
  Receive Date: 20100315
  Receipt Date: 20100303
  Transmission Date: 20100710
  Serious: Yes (Death)
  Sender: FDA-Public Use
  Company Number: GB-AMGEN-US397588

PATIENT
  Sex: Male
  Weight: 81.1 kg

DRUGS (15)
  1. ENBREL [Suspect]
     Indication: RHEUMATOID ARTHRITIS
     Route: 058
     Dates: start: 20090703
  2. CALCIUM CARBONATE [Concomitant]
     Dosage: UNKNOWN
     Route: 065
  3. AMLODIPINE [Concomitant]
     Dosage: UNKNOWN
     Route: 065
  4. BISOPROLOL [Concomitant]
     Dosage: UNKNOWN
     Route: 065
  5. DICLOFENAC SODIUM [Concomitant]
     Dosage: UNKNOWN
     Route: 065
  6. FOLIC ACID [Concomitant]
     Dosage: UNKNOWN
     Route: 065
  7. GLUCOSAMINE [Concomitant]
     Dosage: UNKNOWN
     Route: 065
  8. INSULIN [Concomitant]
     Dosage: UNKNOWN
     Route: 065
  9. LANSOPRAZOLE [Concomitant]
     Dosage: UNKNOWN
     Route: 065
  10. RAMIPRIL [Concomitant]
     Dosage: UNKNOWN
     Route: 065
  11. RISEDRONATE SODIUM [Concomitant]
     Dosage: UNKNOWN
     Route: 065
  12. SULFADIAZINE [Concomitant]
     Dosage: UNKNOWN
     Route: 065
  13. TRANSTEC [Concomitant]
     Dosage: UNKNOWN
     Route: 065
  14. OMEGA-3 TRIGLYCERIDES [Concomitant]
     Dosage: UNKNOWN
     Route: 065
  15. PREDNISOLONE [Concomitant]
     Dosage: UNKNOWN
     Route: 065

REACTIONS (2)
  - CARDIOGENIC SHOCK [None]
  - MYOCARDIAL INFARCTION [None]
